FAERS Safety Report 10026065 (Version 1)
Quarter: 2014Q1

REPORT INFORMATION
  Report Type: Spontaneous
  Country: US (occurrence: US)
  Receive Date: 20140320
  Receipt Date: 20140320
  Transmission Date: 20141002
  Serious: No
  Sender: FDA-Public Use
  Company Number: US-GILEAD-2014-0097196

PATIENT
  Sex: Female

DRUGS (2)
  1. LETAIRIS [Suspect]
     Indication: PRODUCT USED FOR UNKNOWN INDICATION
     Dosage: 10 MG, QD
     Route: 065
     Dates: start: 20100916
  2. REVATIO [Concomitant]

REACTIONS (4)
  - Dyspnoea [Unknown]
  - Dizziness [Unknown]
  - Weight increased [Unknown]
  - Nasopharyngitis [Unknown]
